FAERS Safety Report 7167357-2 (Version None)
Quarter: 2010Q4

REPORT INFORMATION
  Report Type: 
  Country: None (occurrence: None)
  Receive Date: 20101202
  Receipt Date: 20101123
  Transmission Date: 20110411
  Serious: Yes (Other)
  Sender: FDA-Public Use
  Company Number: 20108669

PATIENT
  Age: 34 Year
  Sex: Female

DRUGS (7)
  1. LIORESAL [Suspect]
     Indication: MUSCLE SPASTICITY
     Dosage: 204 - 100 MCG, DAILY, INTRATHECAL-
     Route: 037
  2. ETHINYL ESTRADIOL [Concomitant]
  3. IMITREX PRN [Concomitant]
  4. CALCIUM [Concomitant]
  5. VITAMIN D [Concomitant]
  6. MVI WITH MINERALS [Concomitant]
  7. VITAMIN E [Concomitant]

REACTIONS (9)
  - DEVICE CONNECTION ISSUE [None]
  - DEVICE DEPOSIT ISSUE [None]
  - DEVICE MALFUNCTION [None]
  - HYPERTONIA [None]
  - MUSCLE SPASMS [None]
  - PAIN [None]
  - PRURITUS GENERALISED [None]
  - SCAR [None]
  - WITHDRAWAL SYNDROME [None]
